FAERS Safety Report 6774702-6 (Version None)
Quarter: 2010Q2

REPORT INFORMATION
  Report Type: 
  Country: None (occurrence: None)
  Receive Date: 20100617
  Receipt Date: 20100517
  Transmission Date: 20101027
  Serious: No
  Sender: FDA-Public Use
  Company Number: US-BAYER-201023667NA

PATIENT
  Age: 63 Year
  Sex: Female
  Weight: 45 kg

DRUGS (5)
  1. ULTRAVIST 300 [Suspect]
     Indication: COMPUTERISED TOMOGRAM THORAX
     Dosage: TOTAL DAILY DOSE: 70 ML  UNIT DOSE: 200 ML
     Route: 042
     Dates: start: 20100517, end: 20100517
  2. ACEPHIX [Concomitant]
  3. REGLAN [Concomitant]
  4. PREDNISONE [Concomitant]
     Dosage: GIVEN 24 HRS, 12 HRS AND 1 HOUR PRIOR TO EXAM
     Route: 048
  5. EZ-EM [Concomitant]
     Route: 048
     Dates: start: 20100517, end: 20100517

REACTIONS (2)
  - PRURITUS [None]
  - URTICARIA [None]
